FAERS Safety Report 9410148 (Version 2)
Quarter: 2013Q3

REPORT INFORMATION
  Report Type: Spontaneous
  Country: BR (occurrence: BR)
  Receive Date: 20130719
  Receipt Date: 20130805
  Transmission Date: 20140515
  Serious: Yes (Hospitalization, Disabling, Other)
  Sender: FDA-Public Use
  Company Number: BR-BAYER-2013-085214

PATIENT
  Age: 40 Year
  Sex: Female
  Weight: 61 kg

DRUGS (4)
  1. YASMIN [Suspect]
     Indication: MENORRHAGIA
     Dosage: UNK
     Route: 048
     Dates: start: 200903, end: 2009
  2. GLIFAGE [Concomitant]
     Indication: DIABETES MELLITUS
     Dosage: 2 DF, QD
     Route: 048
     Dates: start: 201303
  3. LOSARTAN [Concomitant]
     Indication: HYPERTENSION
     Dosage: 1 DF, QD
     Route: 048
     Dates: start: 201303
  4. ANDROCUR [Concomitant]
     Dosage: UNK
     Route: 048
     Dates: start: 2009, end: 2009

REACTIONS (19)
  - Haemorrhagic stroke [Recovered/Resolved with Sequelae]
  - Headache [Recovered/Resolved with Sequelae]
  - Convulsion [Recovered/Resolved with Sequelae]
  - Coordination abnormal [None]
  - Muscular weakness [None]
  - Pain in extremity [None]
  - Balance disorder [None]
  - Gait disturbance [None]
  - Dizziness [None]
  - Pain [None]
  - Brain injury [None]
  - Fibromyalgia [Not Recovered/Not Resolved]
  - Off label use [None]
  - Paresis [None]
  - Tremor [None]
  - Hemiparesis [None]
  - Cerebellar syndrome [None]
  - Dysstasia [None]
  - Coordination abnormal [None]
